FAERS Safety Report 6384158-3 (Version None)
Quarter: 2009Q4

REPORT INFORMATION
  Report Type: 
  Country: None (occurrence: None)
  Receive Date: 20091001
  Receipt Date: 20090929
  Transmission Date: 20100525
  Serious: Yes (Other)
  Sender: FDA-Public Use
  Company Number: JP-BAYER-200913419BYL

PATIENT
  Age: 81 Year
  Sex: Male
  Weight: 55 kg

DRUGS (14)
  1. NEXAVAR [Suspect]
     Indication: RENAL CELL CARCINOMA STAGE IV
     Dosage: UNIT DOSE: 200 MG
     Route: 048
     Dates: start: 20080616
  2. HARNAL D [Concomitant]
     Route: 048
     Dates: start: 20080616
  3. PARAPROST [Concomitant]
     Route: 048
     Dates: start: 20080616
  4. LOXONIN [Concomitant]
     Indication: PAIN MANAGEMENT
     Route: 048
     Dates: start: 20080728, end: 20090810
  5. LOXONIN [Concomitant]
     Route: 048
     Dates: start: 20080714, end: 20080727
  6. LOXONIN [Concomitant]
     Route: 048
     Dates: start: 20080616, end: 20080713
  7. SELBEX [Concomitant]
     Indication: PROPHYLAXIS AGAINST GASTROINTESTINAL ULCER
     Route: 048
     Dates: start: 20080616, end: 20080713
  8. SELBEX [Concomitant]
     Route: 048
     Dates: start: 20080728, end: 20090810
  9. SELBEX [Concomitant]
     Route: 048
     Dates: start: 20080714, end: 20080727
  10. ASPIRIN [Concomitant]
     Dosage: TOTAL DAILY DOSE: 100 MG  UNIT DOSE: 100 MG
     Route: 048
     Dates: start: 20080616
  11. LIPITOR [Concomitant]
     Indication: DRUG USE FOR UNKNOWN INDICATION
     Route: 048
     Dates: start: 20080616
  12. TAKEPRON [Concomitant]
     Route: 048
     Dates: start: 20080616
  13. AMLODIN OD [Concomitant]
     Route: 048
     Dates: start: 20080625
  14. MICARDIS [Concomitant]
     Route: 048
     Dates: start: 20090514

REACTIONS (4)
  - CEREBRAL INFARCTION [None]
  - DIARRHOEA [None]
  - HEPATIC FUNCTION ABNORMAL [None]
  - RASH [None]
